FAERS Safety Report 19945881 (Version 1)
Quarter: 2021Q4

REPORT INFORMATION
  Report Type: Spontaneous
  Country: IN (occurrence: IN)
  Receive Date: 20211012
  Receipt Date: 20211012
  Transmission Date: 20220303
  Serious: Yes (Hospitalization)
  Sender: FDA-Public Use
  Company Number: IN-VIRTUS PHARMACEUTICALS, LLC-2021VTS00049

PATIENT
  Age: 28 Year
  Sex: Male

DRUGS (1)
  1. DAPSONE [Suspect]
     Active Substance: DAPSONE
     Indication: Lichen planus
     Dosage: 100 MG, 1X/DAY
     Route: 048

REACTIONS (3)
  - Drug-induced liver injury [Recovered/Resolved]
  - Carditis [Recovered/Resolved]
  - Thyroiditis [Recovered/Resolved]
